FAERS Safety Report 19744278 (Version 1)
Quarter: 2021Q3

REPORT INFORMATION
  Report Type: Spontaneous
  Country: ES (occurrence: ES)
  Receive Date: 20210825
  Receipt Date: 20210825
  Transmission Date: 20211014
  Serious: Yes (Death, Hospitalization)
  Sender: FDA-Public Use
  Company Number: ES-ACCORD-236364

PATIENT
  Age: 80 Year
  Sex: Female

DRUGS (4)
  1. FUROSEMIDE. [Suspect]
     Active Substance: FUROSEMIDE
     Indication: PRODUCT USED FOR UNKNOWN INDICATION
     Dosage: (1615 A)
     Route: 042
     Dates: start: 20210123, end: 20210205
  2. HYDROCHLOROTHIAZIDE. [Suspect]
     Active Substance: HYDROCHLOROTHIAZIDE
     Indication: PRODUCT USED FOR UNKNOWN INDICATION
     Dosage: (1343A)
     Route: 042
     Dates: start: 20210123
  3. AMOXICILLIN SODIUM/CLAVULANATE POTASSIUM [Suspect]
     Active Substance: AMOXICILLIN\CLAVULANATE POTASSIUM
     Indication: CELLULITIS
     Dates: start: 20210125
  4. DOPAMINE [Suspect]
     Active Substance: DOPAMINE HYDROCHLORIDE
     Indication: PRODUCT USED FOR UNKNOWN INDICATION
     Dosage: (1393A)
     Route: 042
     Dates: start: 20210126, end: 20210129

REACTIONS (4)
  - Hypotension [Recovered/Resolved]
  - Hyponatraemia [Unknown]
  - Cardiac failure [Unknown]
  - Eschar [Unknown]

NARRATIVE: CASE EVENT DATE: 20210129
